FAERS Safety Report 13522203 (Version 3)
Quarter: 2017Q3

REPORT INFORMATION
  Report Type: Spontaneous
  Country: GB (occurrence: GB)
  Receive Date: 20170508
  Receipt Date: 20170705
  Transmission Date: 20171127
  Serious: Yes (Hospitalization, Other)
  Sender: FDA-Public Use
  Company Number: GB-GLAXOSMITHKLINE-GB2017GSK062865

PATIENT
  Sex: Female

DRUGS (1)
  1. LAMICTAL [Suspect]
     Active Substance: LAMOTRIGINE
     Indication: EPILEPSY
     Dosage: UNK
     Dates: start: 2005

REACTIONS (15)
  - Hallucination [Unknown]
  - Dizziness [Unknown]
  - Generalised tonic-clonic seizure [Unknown]
  - Seizure [Unknown]
  - Foetal growth restriction [Unknown]
  - Small for dates baby [Unknown]
  - Malaise [Unknown]
  - Restlessness [Unknown]
  - Insomnia [Unknown]
  - Feeling abnormal [Unknown]
  - Muscle twitching [Unknown]
  - Premature labour [Unknown]
  - Exposure during pregnancy [Unknown]
  - Live birth [Unknown]
  - Headache [Unknown]
